FAERS Safety Report 14292849 (Version 19)
Quarter: 2018Q2

REPORT INFORMATION
  Report Type: Spontaneous
  Country: DE (occurrence: DE)
  Receive Date: 20171215
  Receipt Date: 20180621
  Transmission Date: 20180711
  Serious: Yes (Hospitalization, Other)
  Sender: FDA-Public Use
  Company Number: DE-PFIZER INC-2017534902

PATIENT
  Age: 44 Year
  Sex: Male

DRUGS (3)
  1. ETORICOXIB [Suspect]
     Active Substance: ETORICOXIB
     Indication: ARTHRALGIA
     Dosage: UNK
  2. IBUPROFEN. [Suspect]
     Active Substance: IBUPROFEN
     Indication: ARTHRALGIA
     Dosage: UNK, AS NEEDED
  3. ALLOPURINOL. [Suspect]
     Active Substance: ALLOPURINOL
     Indication: ARTHRALGIA
     Dosage: UNK

REACTIONS (1)
  - Toxic epidermal necrolysis [Recovering/Resolving]
